FAERS Safety Report 12917283 (Version 1)
Quarter: 2016Q4

REPORT INFORMATION
  Report Type: Spontaneous
  Country: US (occurrence: US)
  Receive Date: 20161107
  Receipt Date: 20161107
  Transmission Date: 20170207
  Serious: Yes (Hospitalization)
  Sender: FDA-Public Use
  Company Number: US-TEVA-602851USA

PATIENT
  Age: 42 Year
  Sex: Female
  Weight: 90.35 kg

DRUGS (2)
  1. TRACLEER [Suspect]
     Active Substance: BOSENTAN
     Route: 065
  2. EPOPROSTENOL. [Suspect]
     Active Substance: EPOPROSTENOL
     Indication: POSTPARTUM HAEMORRHAGE
     Dosage: 1.5 MG VIAL; 18 NG/KG/MIN
     Route: 041
     Dates: start: 20150808

REACTIONS (3)
  - Bile duct obstruction [Recovered/Resolved]
  - Cholelithiasis [Recovered/Resolved]
  - Drug dose omission [Unknown]

NARRATIVE: CASE EVENT DATE: 20161007
